FAERS Safety Report 19759050 (Version 5)
Quarter: 2024Q3

REPORT INFORMATION
  Report Type: Report from Study
  Country: CH (occurrence: CH)
  Receive Date: 20210827
  Receipt Date: 20240708
  Transmission Date: 20241016
  Serious: Yes (Hospitalization)
  Sender: ROCHE
  Company Number: CH-ROCHE-2894592

PATIENT
  Age: 59 Year
  Sex: Female

DRUGS (4)
  1. OCREVUS [Suspect]
     Active Substance: OCRELIZUMAB
     Indication: Multiple sclerosis
     Dosage: ONGOING
     Route: 042
     Dates: start: 20180627
  2. OCREVUS [Suspect]
     Active Substance: OCRELIZUMAB
     Route: 042
  3. OCREVUS [Suspect]
     Active Substance: OCRELIZUMAB
     Route: 042
  4. OCREVUS [Suspect]
     Active Substance: OCRELIZUMAB
     Route: 042

REACTIONS (9)
  - Soft tissue inflammation [Recovered/Resolved]
  - Cellulitis [Recovered/Resolved]
  - Multiple sclerosis pseudo relapse [Unknown]
  - Psoriasis [Unknown]
  - Intertrigo [Unknown]
  - Hypokalaemia [Unknown]
  - Intertrigo [Unknown]
  - Lymphocyte count decreased [Not Recovered/Not Resolved]
  - Multiple sclerosis [Not Recovered/Not Resolved]

NARRATIVE: CASE EVENT DATE: 20210813
